FAERS Safety Report 4871679-5 (Version None)
Quarter: 2005Q4

REPORT INFORMATION
  Report Type: 
  Country: None (occurrence: None)
  Receive Date: 20051230
  Receipt Date: 20051215
  Transmission Date: 20060501
  Serious: Yes (Death)
  Sender: FDA-Public Use
  Company Number: JP200511000728

PATIENT
  Age: 31 Year
  Sex: Male

DRUGS (7)
  1. ZYPREXA [Suspect]
     Indication: SCHIZOPHRENIA
     Dosage: 10 + 20 MG, DAILY (1/D), ORAL
     Route: 048
     Dates: start: 20050922, end: 20051003
  2. ZYPREXA [Suspect]
     Indication: SCHIZOPHRENIA
     Dosage: 10 + 20 MG, DAILY (1/D), ORAL
     Route: 048
     Dates: start: 20051004
  3. ZYPREXA [Suspect]
     Indication: SCHIZOPHRENIA
     Dosage: 5 MG, DAILY (1/D), ORAL
     Route: 048
     Dates: start: 20050927, end: 20051003
  4. RISPERIDONE (RISPEIDONE) POWDER, FOR SUSPENSION C [Concomitant]
  5. CHLORPROMAZINE (CHLORPROMAZINE) POWDER, FOR SUSPENSION [Concomitant]
  6. BIPERIDEN (BIPERIDEN) [Concomitant]
  7. LORAZEPAM [Concomitant]

REACTIONS (4)
  - ASTHENIA [None]
  - COMPLETED SUICIDE [None]
  - MALAISE [None]
  - STRESS [None]
